FAERS Safety Report 6897224-0 (Version None)
Quarter: 2010Q3

REPORT INFORMATION
  Report Type: 
  Country: None (occurrence: None)
  Receive Date: 20100802
  Receipt Date: 20070321
  Transmission Date: 20110219
  Serious: No
  Sender: FDA-Public Use
  Company Number: US-PFIZER INC-2007023933

PATIENT
  Sex: Female
  Weight: 65.3 kg

DRUGS (9)
  1. LYRICA [Suspect]
     Indication: FIBROMYALGIA
     Dates: start: 20070201, end: 20070201
  2. DRUG, UNSPECIFIED [Concomitant]
  3. LOTRONEX [Concomitant]
  4. CALCIUM CARBONATE [Concomitant]
  5. VITAMINS [Concomitant]
  6. MINERALS NOS [Concomitant]
  7. ACIPHEX [Concomitant]
  8. IRON [Concomitant]
  9. CALCITRIOL [Concomitant]

REACTIONS (5)
  - BALANCE DISORDER [None]
  - DIPLOPIA [None]
  - DYSPHONIA [None]
  - NIGHT BLINDNESS [None]
  - VOCAL CORD PARESIS [None]
